FAERS Safety Report 18577159 (Version 1)
Quarter: 2020Q4

REPORT INFORMATION
  Report Type: Spontaneous
  Country: US (occurrence: US)
  Receive Date: 20201203
  Receipt Date: 20201203
  Transmission Date: 20210114
  Serious: No
  Sender: FDA-Public Use
  Company Number: US-GILEAD-2020-0506843

PATIENT
  Sex: Male

DRUGS (1)
  1. VEMLIDY [Suspect]
     Active Substance: TENOFOVIR ALAFENAMIDE FUMARATE
     Indication: HEPATITIS B
     Route: 065

REACTIONS (6)
  - Cerebral disorder [Recovering/Resolving]
  - Thinking abnormal [Recovering/Resolving]
  - Mental impairment [Recovering/Resolving]
  - Quality of life decreased [Not Recovered/Not Resolved]
  - Dyspepsia [Recovering/Resolving]
  - Memory impairment [Recovering/Resolving]
